FAERS Safety Report 10475426 (Version 1)
Quarter: 2014Q3

REPORT INFORMATION
  Report Type: Spontaneous
  Country: US (occurrence: None)
  Receive Date: 20140924
  Receipt Date: 20140924
  Transmission Date: 20150326
  Serious: Yes (Other)
  Sender: FDA-Public Use
  Company Number: None

PATIENT
  Age: 63 Year
  Sex: Female
  Weight: 59.88 kg

DRUGS (2)
  1. LEVOFLOXACIN [Suspect]
     Active Substance: LEVOFLOXACIN
     Dosage: 10 PILLS, ONCE DAILY?
     Dates: start: 20140917, end: 20140922
  2. LEVOFLOXACIN [Suspect]
     Active Substance: LEVOFLOXACIN
     Indication: SINUSITIS
     Dosage: 10 PILLS, ONCE DAILY?
     Dates: start: 20140917, end: 20140922

REACTIONS (8)
  - Pain [None]
  - Musculoskeletal pain [None]
  - Arthralgia [None]
  - Crying [None]
  - Confusional state [None]
  - Depression [None]
  - Back pain [None]
  - Pain in extremity [None]

NARRATIVE: CASE EVENT DATE: 20140923
